FAERS Safety Report 6626366-X (Version None)
Quarter: 2010Q1

REPORT INFORMATION
  Report Type: 
  Country: None (occurrence: None)
  Receive Date: 20100310
  Receipt Date: 20090924
  Transmission Date: 20100710
  Serious: No
  Sender: FDA-Public Use
  Company Number: US-ABBOTT-09P-163-0599787-00

PATIENT
  Age: 31 Year
  Sex: Female
  Weight: 71.278 kg

DRUGS (3)
  1. LUPRON DEPOT [Suspect]
     Indication: ENDOMETRIOSIS
     Route: 030
     Dates: start: 20090907
  2. DEPO-PROVERA [Concomitant]
     Indication: CONTRACEPTION
  3. NORETHINDRONE ACETATE [Concomitant]
     Indication: HORMONE REPLACEMENT THERAPY
     Dates: start: 20090901

REACTIONS (1)
  - HOT FLUSH [None]
